FAERS Safety Report 6025580-4 (Version None)
Quarter: 2008Q4

REPORT INFORMATION
  Report Type: 
  Country: None (occurrence: None)
  Receive Date: 20081231
  Receipt Date: 20081216
  Transmission Date: 20090506
  Serious: Yes (Other)
  Sender: FDA-Public Use
  Company Number: IL-CELGENEUS-082-20785-08121094

PATIENT
  Age: 14 Year
  Sex: Male

DRUGS (1)
  1. THALIDOMIDE [Suspect]
     Indication: CROHN'S DISEASE
     Route: 048
     Dates: start: 20081101

REACTIONS (1)
  - HEPATIC ENZYME ABNORMAL [None]
